FAERS Safety Report 4696977-X (Version None)
Quarter: 2005Q2

REPORT INFORMATION
  Report Type: 
  Country: None (occurrence: None)
  Receive Date: 20050622
  Receipt Date: 20050611
  Transmission Date: 20051028
  Serious: Yes (Other)
  Sender: FDA-Public Use
  Company Number: PHEH2005US06667

PATIENT
  Age: 78 Year
  Sex: Male
  Weight: 79 kg

DRUGS (7)
  1. LOTREL [Suspect]
     Indication: HYPERTENSION
     Dosage: 5 MG AML/20 MG BEN, QOD
     Route: 048
     Dates: start: 20050101
  2. LOTREL [Suspect]
     Dosage: 5 MG AML/20 MG BEN, QD
     Route: 048
     Dates: start: 20040101, end: 20050101
  3. LOTREL [Suspect]
     Dosage: 5 MG AML/20 MG BEN, BID
     Route: 048
     Dates: start: 20020101, end: 20040101
  4. LOTREL [Suspect]
     Dosage: 5 MG AML/20 MG BEN, QD
     Route: 048
     Dates: start: 20020101, end: 20020101
  5. LOZOL [Suspect]
     Indication: JOINT SWELLING
     Dosage: 2.5 MG, QD
     Dates: start: 20020101
  6. HYTRIN [Concomitant]
     Indication: BENIGN PROSTATIC HYPERPLASIA
     Dosage: 5MG
  7. ASACOL [Concomitant]
     Indication: STOMACH DISCOMFORT

REACTIONS (5)
  - BLOOD PRESSURE INCREASED [None]
  - DIZZINESS [None]
  - HYPOTENSION [None]
  - JOINT SWELLING [None]
  - LOSS OF CONSCIOUSNESS [None]
